FAERS Safety Report 6420731-1 (Version None)
Quarter: 2009Q4

REPORT INFORMATION
  Report Type: 
  Country: None (occurrence: None)
  Receive Date: 20091030
  Receipt Date: 20091023
  Transmission Date: 20100525
  Serious: Yes (Hospitalization)
  Sender: FDA-Public Use
  Company Number: US-BIOGENIDEC-2009BI033298

PATIENT
  Age: 65 Year
  Sex: Female

DRUGS (4)
  1. TYSABRI [Suspect]
     Indication: MULTIPLE SCLEROSIS
     Route: 042
     Dates: start: 20070808
  2. ACTONEL [Concomitant]
  3. BACLOFEN [Concomitant]
  4. FUROSEMIDE [Concomitant]
     Indication: OEDEMA PERIPHERAL

REACTIONS (4)
  - BACK PAIN [None]
  - ESCHERICHIA URINARY TRACT INFECTION [None]
  - HYPOKALAEMIA [None]
  - NECK PAIN [None]
